FAERS Safety Report 14601589 (Version 1)
Quarter: 2018Q1

REPORT INFORMATION
  Report Type: Report from Study
  Country: CA (occurrence: CA)
  Receive Date: 20180306
  Receipt Date: 20180306
  Transmission Date: 20180509
  Serious: Yes (Other)
  Sender: FDA-Public Use
  Company Number: CA-ROCHE-2054681

PATIENT
  Age: 66 Year
  Sex: Female

DRUGS (24)
  1. TYLENOL [Concomitant]
     Active Substance: ACETAMINOPHEN
  2. FOLIC ACID. [Concomitant]
     Active Substance: FOLIC ACID
  3. FISH OIL [Concomitant]
     Active Substance: FISH OIL
  4. ATIVAN [Concomitant]
     Active Substance: LORAZEPAM
  5. ATORVASTATIN [Concomitant]
     Active Substance: ATORVASTATIN
  6. EURO-K20 [Concomitant]
  7. LANSOPRAZOLE. [Concomitant]
     Active Substance: LANSOPRAZOLE
  8. ACETAMINOPHEN. [Concomitant]
     Active Substance: ACETAMINOPHEN
     Route: 048
     Dates: start: 20180110
  9. VITAMIN B12 [Concomitant]
     Active Substance: CYANOCOBALAMIN
  10. DICLOFENAC [Concomitant]
     Active Substance: DICLOFENAC
     Route: 061
  11. ESTRADIOL. [Concomitant]
     Active Substance: ESTRADIOL
     Dosage: DERM 100 (HRT)
     Route: 065
  12. APO-HYDRO [Concomitant]
     Active Substance: HYDROCHLOROTHIAZIDE
  13. PAROXETINE. [Concomitant]
     Active Substance: PAROXETINE
  14. CLONIDINE. [Concomitant]
     Active Substance: CLONIDINE
  15. RITUXAN [Suspect]
     Active Substance: RITUXIMAB
     Indication: RHEUMATOID ARTHRITIS
     Dosage: ON DAY 1 AND 15
     Route: 042
     Dates: start: 20180110
  16. ALPRAZOLAM. [Concomitant]
     Active Substance: ALPRAZOLAM
  17. CYCLOBENZAPRINE. [Concomitant]
     Active Substance: CYCLOBENZAPRINE
  18. PREDNISONE. [Suspect]
     Active Substance: PREDNISONE
     Indication: RHEUMATOID ARTHRITIS
     Route: 065
  19. METHYLPREDNISOLONE. [Concomitant]
     Active Substance: METHYLPREDNISOLONE
     Route: 042
     Dates: start: 20180110
  20. LAMOTRIGINE. [Concomitant]
     Active Substance: LAMOTRIGINE
  21. SYNTHROID [Concomitant]
     Active Substance: LEVOTHYROXINE SODIUM
  22. DIPHENHYDRAMINE. [Concomitant]
     Active Substance: DIPHENHYDRAMINE
     Route: 048
     Dates: start: 20180110
  23. ZOPICLONE [Concomitant]
     Active Substance: ZOPICLONE
  24. METHOTREXATE. [Concomitant]
     Active Substance: METHOTREXATE

REACTIONS (6)
  - Mania [Not Recovered/Not Resolved]
  - Feeling abnormal [Unknown]
  - Malaise [Recovered/Resolved]
  - Peripheral swelling [Not Recovered/Not Resolved]
  - Tremor [Recovered/Resolved]
  - Abdominal discomfort [Recovered/Resolved]

NARRATIVE: CASE EVENT DATE: 20180110
